FAERS Safety Report 8330272-2 (Version None)
Quarter: 2012Q2

REPORT INFORMATION
  Report Type: 
  Country: None (occurrence: None)
  Receive Date: 20120502
  Receipt Date: 20120425
  Transmission Date: 20120825
  Serious: Yes (Hospitalization, Other)
  Sender: FDA-Public Use
  Company Number: SA-AMGEN-SAUSP2012027425

PATIENT
  Age: 55 Year
  Sex: Male
  Weight: 70 kg

DRUGS (3)
  1. NEULASTIM [Suspect]
     Indication: PROPHYLAXIS
     Dosage: 6 MG, Q3WK
     Route: 058
     Dates: start: 20120213, end: 20120213
  2. OXALIPLATIN [Suspect]
     Indication: COLON CANCER
     Dosage: 130 MG/M2, Q3WK
     Route: 042
     Dates: start: 20120213, end: 20120326
  3. XELODA [Suspect]
     Indication: COLON CANCER
     Dosage: 1000 MG/M2, Q3WK
     Route: 048
     Dates: start: 20120213, end: 20120218

REACTIONS (1)
  - FEBRILE NEUTROPENIA [None]
